FAERS Safety Report 5307672-8 (Version None)
Quarter: 2007Q2

REPORT INFORMATION
  Report Type: 
  Country: None (occurrence: None)
  Receive Date: 20070425
  Receipt Date: 20070413
  Transmission Date: 20071010
  Serious: Yes (Other)
  Sender: FDA-Public Use
  Company Number: FR-PFIZER INC-2007011206

PATIENT
  Sex: Female
  Weight: 67 kg

DRUGS (3)
  1. LYRICA [Suspect]
     Indication: NEURALGIA
     Route: 048
     Dates: start: 20061101, end: 20070215
  2. LYRICA [Suspect]
     Indication: PAIN
  3. PARACETAMOL [Concomitant]

REACTIONS (5)
  - CHEST DISCOMFORT [None]
  - FALL [None]
  - MALAISE [None]
  - MYOCLONUS [None]
  - WEIGHT INCREASED [None]
